FAERS Safety Report 7501213-2 (Version None)
Quarter: 2011Q2

REPORT INFORMATION
  Report Type: 
  Country: None (occurrence: None)
  Receive Date: 20110524
  Receipt Date: 20110509
  Transmission Date: 20111010
  Serious: No
  Sender: FDA-Public Use
  Company Number: US-B.I. PHARMACEUTICALS,INC./RIDGEFIELD-2011-BP-12637BP

PATIENT
  Age: 72 Year
  Sex: Male

DRUGS (7)
  1. NADOLOL [Concomitant]
     Indication: HYPERTENSION
  2. PRADAXA [Suspect]
     Indication: ATRIAL FIBRILLATION
     Dosage: 300 MG
     Route: 048
     Dates: start: 20110426
  3. LOPID [Concomitant]
     Indication: BLOOD CHOLESTEROL INCREASED
  4. NADOLOL [Concomitant]
     Indication: ATRIAL FIBRILLATION
  5. MAGNESIUM [Concomitant]
     Indication: ROUTINE HEALTH MAINTENANCE
  6. LISINOPRIL [Concomitant]
     Indication: HYPERTENSION
  7. DIGOXIN [Concomitant]
     Indication: ATRIAL FIBRILLATION

REACTIONS (2)
  - DYSPEPSIA [None]
  - MUSCULOSKELETAL PAIN [None]
